FAERS Safety Report 8255011-5 (Version None)
Quarter: 2012Q2

REPORT INFORMATION
  Report Type: 
  Country: None (occurrence: None)
  Receive Date: 20120403
  Receipt Date: 20120322
  Transmission Date: 20120825
  Serious: Yes (Other)
  Sender: FDA-Public Use
  Company Number: CO-JNJFOC-20120312195

PATIENT
  Age: 48 Year
  Sex: Female

DRUGS (2)
  1. INFLIXIMAB, RECOMBINANT [Suspect]
     Route: 042
     Dates: end: 20120104
  2. INFLIXIMAB, RECOMBINANT [Suspect]
     Indication: RHEUMATOID ARTHRITIS
     Route: 042

REACTIONS (5)
  - DYSPNOEA [None]
  - TACHYCARDIA [None]
  - FEELING HOT [None]
  - CHEST PAIN [None]
  - INFUSION RELATED REACTION [None]
